FAERS Safety Report 17571923 (Version 5)
Quarter: 2023Q2

REPORT INFORMATION
  Report Type: Report from Study
  Country: JP (occurrence: JP)
  Receive Date: 20200323
  Receipt Date: 20230627
  Transmission Date: 20230721
  Serious: Yes (Hospitalization)
  Sender: FDA-Public Use
  Company Number: JP-JNJFOC-20200321354

PATIENT
  Age: 72 Year
  Sex: Female
  Weight: 66.2 kg

DRUGS (7)
  1. TREMFYA [Suspect]
     Active Substance: GUSELKUMAB
     Indication: Palmoplantar pustulosis
     Dosage: THE PATIENT RECEIVED CYCLICAL DOSES  ON 06-NOV-2019, 24-DEC-2019, 18-FEB-2020
     Route: 058
     Dates: start: 20190924, end: 20190924
  2. TREMFYA [Suspect]
     Active Substance: GUSELKUMAB
     Route: 058
     Dates: start: 20191106, end: 20191106
  3. TREMFYA [Suspect]
     Active Substance: GUSELKUMAB
     Route: 058
     Dates: start: 20191224, end: 20191224
  4. TREMFYA [Suspect]
     Active Substance: GUSELKUMAB
     Route: 058
     Dates: start: 20200218
  5. BETAMETHASONE BUTYRATE PROPIONATE\MAXACALCITOL [Concomitant]
     Active Substance: BETAMETHASONE BUTYRATE PROPIONATE\MAXACALCITOL
     Indication: Palmoplantar pustulosis
     Dosage: UNKNOWN
     Route: 061
     Dates: start: 20191224, end: 20191224
  6. OTEZLA [Concomitant]
     Active Substance: APREMILAST
     Indication: Palmoplantar pustulosis
     Route: 048
     Dates: start: 20190423, end: 20191224
  7. CEFAZOLIN SODIUM [Concomitant]
     Active Substance: CEFAZOLIN SODIUM
     Indication: Cellulitis
     Route: 065
     Dates: start: 20191029, end: 20191106

REACTIONS (1)
  - Cellulitis [Recovered/Resolved]

NARRATIVE: CASE EVENT DATE: 20191029
